FAERS Safety Report 8231809-4 (Version None)
Quarter: 2012Q1

REPORT INFORMATION
  Report Type: 
  Country: None (occurrence: None)
  Receive Date: 20120323
  Receipt Date: 20120314
  Transmission Date: 20120608
  Serious: Yes (Other)
  Sender: FDA-Public Use
  Company Number: US-JNJFOC-20111204914

PATIENT
  Sex: Male

DRUGS (3)
  1. REMICADE [Suspect]
     Indication: ANKYLOSING SPONDYLITIS
     Route: 042
     Dates: start: 20100701
  2. CARAFATE [Concomitant]
     Dates: start: 20111219
  3. MAGIC MOUTHWASH [Concomitant]
     Dates: start: 20111219

REACTIONS (1)
  - NEOPLASM MALIGNANT [None]
